FAERS Safety Report 6450712-3 (Version None)
Quarter: 2009Q4

REPORT INFORMATION
  Report Type: 
  Country: None (occurrence: None)
  Receive Date: 20091120
  Receipt Date: 20091120
  Transmission Date: 20100525
  Serious: Yes (Hospitalization)
  Sender: FDA-Public Use
  Company Number: None

PATIENT
  Sex: Male
  Weight: 90 kg

DRUGS (3)
  1. LAMOTRIGINE [Suspect]
     Indication: BIPOLAR DISORDER
     Dosage: 100 MG DAILY PO
     Route: 048
     Dates: start: 20090816, end: 20090906
  2. LAMOTRIGINE [Suspect]
     Indication: PHARYNGITIS
     Dosage: 100 MG DAILY PO
     Route: 048
     Dates: start: 20090816, end: 20090906
  3. PENICILLIN V [Suspect]
     Indication: BETA HAEMOLYTIC STREPTOCOCCAL INFECTION
     Dosage: 500 MG TID PO
     Route: 048
     Dates: start: 20090909, end: 20090915

REACTIONS (33)
  - ALANINE AMINOTRANSFERASE INCREASED [None]
  - ASPARTATE AMINOTRANSFERASE INCREASED [None]
  - ASTHENIA [None]
  - BETA HAEMOLYTIC STREPTOCOCCAL INFECTION [None]
  - CHOLESTASIS [None]
  - CONJUNCTIVAL HYPERAEMIA [None]
  - CYANOSIS [None]
  - DRUG HYPERSENSITIVITY [None]
  - DRUG RASH WITH EOSINOPHILIA AND SYSTEMIC SYMPTOMS [None]
  - EYE PRURITUS [None]
  - EYE SWELLING [None]
  - FACE OEDEMA [None]
  - FATIGUE [None]
  - GAMMA-GLUTAMYLTRANSFERASE INCREASED [None]
  - HEPATIC NECROSIS [None]
  - HYPERAESTHESIA [None]
  - HYPERGLYCAEMIA [None]
  - HYPERSENSITIVITY [None]
  - HYPOTENSION [None]
  - INFLAMMATION [None]
  - INTERNATIONAL NORMALISED RATIO INCREASED [None]
  - LIVER DISORDER [None]
  - ORAL DISORDER [None]
  - OROPHARYNGEAL PAIN [None]
  - PLATELET COUNT DECREASED [None]
  - RASH ERYTHEMATOUS [None]
  - RASH MACULO-PAPULAR [None]
  - RASH PRURITIC [None]
  - SEPSIS [None]
  - SKIN EXFOLIATION [None]
  - STAPHYLOCOCCAL INFECTION [None]
  - STREPTOCOCCAL INFECTION [None]
  - VISION BLURRED [None]
